FAERS Safety Report 7717977-9 (Version None)
Quarter: 2011Q3

REPORT INFORMATION
  Report Type: 
  Country: None (occurrence: None)
  Receive Date: 20110830
  Receipt Date: 20110823
  Transmission Date: 20111222
  Serious: Yes (Other)
  Sender: FDA-Public Use
  Company Number: US-JNJFOC-20110707187

PATIENT
  Age: 48 Year
  Sex: Female

DRUGS (7)
  1. REMICADE [Suspect]
     Indication: RHEUMATOID ARTHRITIS
     Dosage: DOSE REPORTED AS 300-400 MG EVERY 4-8 WEEKS
     Route: 042
     Dates: start: 20061201
  2. PRILOSEC [Concomitant]
     Route: 065
  3. LEVOXYL [Concomitant]
     Route: 065
  4. PREDNISONE [Concomitant]
     Route: 065
  5. MELOXICAM [Concomitant]
     Route: 065
  6. FOLIC ACID [Concomitant]
     Route: 065
  7. METHOTREXATE [Concomitant]
     Route: 065

REACTIONS (1)
  - BREAST CANCER [None]
